FAERS Safety Report 5266151-7 (Version None)
Quarter: 2007Q1

REPORT INFORMATION
  Report Type: 
  Country: None (occurrence: None)
  Receive Date: 20070307
  Receipt Date: 20070220
  Transmission Date: 20070707
  Serious: Yes (Other)
  Sender: FDA-Public Use
  Company Number: B0460411A

PATIENT
  Age: 31 Year
  Sex: Male

DRUGS (6)
  1. EPIVIR [Suspect]
     Indication: HIV INFECTION
     Dates: start: 20031101
  2. TENOFOVIR (FORMULATION UNKNOWN) (TENOFOVIR) [Suspect]
     Indication: HIV INFECTION
  3. EFAVIRENZ [Suspect]
     Indication: HIV INFECTION
  4. FLUCONAZOLE [Concomitant]
  5. CO-TRIMOXAZOLE [Concomitant]
  6. DOXORUBICIN HCL [Concomitant]

REACTIONS (8)
  - COLON ADENOMA [None]
  - COLONIC POLYP [None]
  - DIARRHOEA HAEMORRHAGIC [None]
  - IMMUNE RECONSTITUTION SYNDROME [None]
  - KAPOSI'S SARCOMA [None]
  - NEOPLASM RECURRENCE [None]
  - PLEURAL EFFUSION [None]
  - SCHISTOSOMIASIS [None]
